FAERS Safety Report 14425934 (Version 1)
Quarter: 2018Q1

REPORT INFORMATION
  Report Type: Spontaneous
  Country: US (occurrence: US)
  Receive Date: 20180122
  Receipt Date: 20180122
  Transmission Date: 20180509
  Serious: Yes (Hospitalization)
  Sender: FDA-Public Use
  Company Number: None

PATIENT
  Age: 30 Year
  Sex: Female

DRUGS (2)
  1. MAKENA [Suspect]
     Active Substance: HYDROXYPROGESTERONE CAPROATE
     Indication: PREMATURE LABOUR
     Route: 030
     Dates: start: 20171018
  2. PRENATAL [Concomitant]
     Active Substance: VITAMINS

REACTIONS (2)
  - Complication of pregnancy [None]
  - Amniorrhoea [None]

NARRATIVE: CASE EVENT DATE: 20180112
